FAERS Safety Report 4353475-0 (Version None)
Quarter: 2004Q2

REPORT INFORMATION
  Report Type: 
  Country: None (occurrence: None)
  Receive Date: 20040505
  Receipt Date: 20040505
  Transmission Date: 20050107
  Serious: Yes (Life-Threatening, Hospitalization)
  Sender: FDA-Public Use
  Company Number: None

PATIENT
  Age: 84 Year
  Sex: Male
  Weight: 62.6 kg

DRUGS (14)
  1. WARFARIN SODIUM [Suspect]
     Indication: ATRIAL FIBRILLATION
     Dosage: 4 MG, 4 MG DAIL , ORAL
     Route: 048
     Dates: end: 20030924
  2. SULFACETAMIDE [Concomitant]
  3. ERYTHROMYCIN STERATE [Concomitant]
  4. SPIRONOLACTONE [Concomitant]
  5. SERTRALINE HCL [Concomitant]
  6. POTASSIUM CHLORIDE [Concomitant]
  7. LISINOPRIL [Concomitant]
  8. ATENOLOL [Concomitant]
  9. FUROSEMIDE [Concomitant]
  10. FERROUS SULFATE TAB [Concomitant]
  11. AL HYDROXIDE./MG HYDROX/SIMETHICONE [Concomitant]
  12. ISOSORBIDE DINITRATE [Concomitant]
  13. DIGOXIN [Concomitant]
  14. GUAIFENESIN/CODEINE [Concomitant]

REACTIONS (3)
  - ANAEMIA [None]
  - HAEMATOMA [None]
  - HYPOVOLAEMIA [None]
